FAERS Safety Report 9070446 (Version 2)
Quarter: 2013Q1

REPORT INFORMATION
  Report Type: Spontaneous
  Country: US (occurrence: US)
  Receive Date: 20130215
  Receipt Date: 20130304
  Transmission Date: 20140127
  Serious: Yes (Death, Hospitalization)
  Sender: FDA-Public Use
  Company Number: PHEH2013US003685

PATIENT
  Sex: Male
  Weight: 78.6 kg

DRUGS (6)
  1. RECLAST [Suspect]
     Indication: OSTEOPOROSIS
     Dosage: UNK
     Route: 042
     Dates: start: 20120307
  2. ADVAIR [Concomitant]
     Dosage: UNK UKN, UNK
  3. SPIRIVA [Concomitant]
     Dosage: UNK UKN, UNK
  4. WARFARIN [Concomitant]
     Dosage: UKN
  5. FUROSEMIDE [Concomitant]
     Dosage: UNK UKN, UNK
  6. LEVOTHYROXINE [Concomitant]
     Dosage: UNK UKN, UNK

REACTIONS (3)
  - Chronic obstructive pulmonary disease [Fatal]
  - Pleural effusion [Fatal]
  - Dyspnoea [Fatal]
